FAERS Safety Report 18436396 (Version 6)
Quarter: 2021Q1

REPORT INFORMATION
  Report Type: Spontaneous
  Country: US (occurrence: US)
  Receive Date: 20201028
  Receipt Date: 20210111
  Transmission Date: 20210419
  Serious: Yes (Other)
  Sender: FDA-Public Use
  Company Number: US-PFIZER INC-2020416061

PATIENT
  Age: 73 Year
  Sex: Female
  Weight: 83.91 kg

DRUGS (3)
  1. PHENYTOIN SODIUM. [Suspect]
     Active Substance: PHENYTOIN SODIUM
     Indication: SEIZURE
     Dosage: 100 MG, 3X/DAY (MONDAY, WEDNESDAY, FRIDAY)
     Route: 048
     Dates: start: 2016
  2. LYRICA [Concomitant]
     Active Substance: PREGABALIN
     Indication: SEIZURE
     Dosage: 100 MG, 3X/DAY
  3. PHENYTOIN SODIUM. [Suspect]
     Active Substance: PHENYTOIN SODIUM
     Dosage: 100 MG, 4X/DAY (TUESDAY, THURSDAY, SATURDAY, AND SUNDAY)
     Route: 048
     Dates: start: 2016

REACTIONS (4)
  - Seizure [Unknown]
  - Emotional disorder [Unknown]
  - Drug ineffective [Unknown]
  - Crying [Unknown]

NARRATIVE: CASE EVENT DATE: 2016
